FAERS Safety Report 7551318-5 (Version None)
Quarter: 2011Q2

REPORT INFORMATION
  Report Type: 
  Country: None (occurrence: None)
  Receive Date: 20110616
  Receipt Date: 20110613
  Transmission Date: 20111010
  Serious: Yes (Hospitalization, Other)
  Sender: FDA-Public Use
  Company Number: US-PFIZER INC-2011129693

PATIENT
  Sex: Female

DRUGS (1)
  1. CHANTIX [Suspect]
     Dosage: UNK
     Dates: start: 20090702

REACTIONS (21)
  - DISORIENTATION [None]
  - PSYCHOTIC DISORDER [None]
  - ADJUSTMENT DISORDER [None]
  - IMPULSE-CONTROL DISORDER [None]
  - INSOMNIA [None]
  - SUICIDE ATTEMPT [None]
  - COGNITIVE DISORDER [None]
  - PARANOIA [None]
  - SUICIDAL IDEATION [None]
  - HOMICIDAL IDEATION [None]
  - MAJOR DEPRESSION [None]
  - BIPOLAR DISORDER [None]
  - APHASIA [None]
  - ABNORMAL BEHAVIOUR [None]
  - HALLUCINATION, AUDITORY [None]
  - IRRITABILITY [None]
  - CONVULSION [None]
  - MENTAL DISORDER [None]
  - ANXIETY [None]
  - AGGRESSION [None]
  - GRANDIOSITY [None]
